FAERS Safety Report 6805813-4 (Version None)
Quarter: 2010Q2

REPORT INFORMATION
  Report Type: 
  Country: None (occurrence: None)
  Receive Date: 20100629
  Receipt Date: 20090523
  Transmission Date: 20101027
  Serious: No
  Sender: FDA-Public Use
  Company Number: US-PFIZER INC-2005069814

PATIENT
  Sex: Male
  Weight: 72.6 kg

DRUGS (8)
  1. VIAGRA [Suspect]
     Indication: ERECTILE DYSFUNCTION
     Dosage: 50 MG, AS NEEDED
     Route: 065
     Dates: start: 20040101
  2. CIALIS [Suspect]
     Indication: ERECTILE DYSFUNCTION
     Route: 065
  3. AVALIDE [Concomitant]
     Route: 065
  4. ZESTRIL [Concomitant]
     Route: 065
  5. PROCARDIA XL [Concomitant]
     Route: 065
  6. WARFARIN [Concomitant]
     Route: 065
  7. COZAAR [Concomitant]
     Dosage: UNK
  8. TESTOSTERONE [Concomitant]
     Dosage: UNK

REACTIONS (3)
  - BLOOD CHOLESTEROL INCREASED [None]
  - ERECTILE DYSFUNCTION [None]
  - THERAPEUTIC RESPONSE DECREASED [None]
